FAERS Safety Report 17419703 (Version 1)
Quarter: 2020Q1

REPORT INFORMATION
  Report Type: Spontaneous
  Country: HR (occurrence: HR)
  Receive Date: 20200214
  Receipt Date: 20200214
  Transmission Date: 20200409
  Serious: Yes (Other)
  Sender: FDA-Public Use
  Company Number: HR-TEVA-2020-HR-1185788

PATIENT
  Age: 23 Year
  Sex: Female
  Weight: 65 kg

DRUGS (1)
  1. KLAVOCIN BID TABLETE 1 G [Suspect]
     Active Substance: AMOXICILLIN\CLAVULANATE POTASSIUM
     Indication: SINUSITIS BACTERIAL
     Dosage: 2 DOSAGE FORMS 1 DAYS
     Route: 048
     Dates: start: 20200107, end: 20200114

REACTIONS (1)
  - Haematochezia [Recovered/Resolved]

NARRATIVE: CASE EVENT DATE: 20200109
